FAERS Safety Report 6644314-3 (Version None)
Quarter: 2010Q1

REPORT INFORMATION
  Report Type: 
  Country: None (occurrence: None)
  Receive Date: 20100322
  Receipt Date: 20100315
  Transmission Date: 20100710
  Serious: Yes (Hospitalization)
  Sender: FDA-Public Use
  Company Number: US-ELI_LILLY_AND_COMPANY-US201001000358

PATIENT
  Sex: Male
  Weight: 84.6 kg

DRUGS (17)
  1. PEMETREXED [Suspect]
     Indication: NON-SMALL CELL LUNG CANCER
     Dosage: 500 MG/M2, OTHER
     Route: 042
     Dates: start: 20091014
  2. PEMETREXED [Suspect]
     Dosage: UNK, OTHER
     Route: 042
  3. CARBOPLATIN [Suspect]
     Indication: NON-SMALL CELL LUNG CANCER
     Dosage: 6 D/F, OTHER
     Route: 042
     Dates: start: 20091014
  4. BEVACIZUMAB [Suspect]
     Indication: NON-SMALL CELL LUNG CANCER
     Dosage: 15 MG/KG, OTHER
     Route: 042
     Dates: start: 20091014
  5. CRESTOR [Concomitant]
     Indication: HYPERCHOLESTEROLAEMIA
     Dosage: 10 MG, DAILY (1/D)
     Route: 048
     Dates: start: 20090215
  6. TOPROL-XL [Concomitant]
     Dosage: 100 MG, DAILY (1/D)
     Dates: start: 20070115
  7. ASPIRIN [Concomitant]
     Indication: PROPHYLAXIS
     Dosage: 81 MG, DAILY (1/D)
     Route: 048
     Dates: start: 20070115
  8. TYLENOL                                 /SCH/ [Concomitant]
     Indication: ARTHRALGIA
     Dosage: UNK, AS NEEDED
     Route: 048
     Dates: start: 20040101
  9. DEXAMETHASONE [Concomitant]
     Indication: PREMEDICATION
     Dosage: 4 MG, UNK
     Dates: start: 20091013
  10. FOLIC ACID [Concomitant]
     Indication: SUPPLEMENTATION THERAPY
     Dates: start: 20091007
  11. VITAMIN B-12 [Concomitant]
     Indication: SUPPLEMENTATION THERAPY
     Dosage: 1000 UG, OTHER
     Route: 030
     Dates: start: 20091007
  12. CENTRUM [Concomitant]
     Indication: SUPPLEMENTATION THERAPY
     Dosage: UNK, DAILY (1/D)
     Route: 048
  13. TYLENOL W/ CODEINE [Concomitant]
     Indication: PAIN
     Dosage: UNK, AS NEEDED
     Dates: start: 20091007
  14. MELATONIN [Concomitant]
     Indication: INSOMNIA
     Dosage: UNK, AS NEEDED
     Dates: start: 20091103
  15. ZOMETA [Concomitant]
     Indication: METASTASIS
     Dates: start: 20091007
  16. AMBIEN [Concomitant]
     Indication: INSOMNIA
     Dosage: 10 MG, EACH EVENING
     Route: 048
     Dates: start: 20091109
  17. PLAVIX [Concomitant]
     Indication: PROPHYLAXIS
     Dosage: 75 MG, DAILY (1/D)
     Route: 048
     Dates: start: 20091125

REACTIONS (1)
  - ANAEMIA [None]
